FAERS Safety Report 10078651 (Version 2)
Quarter: 2014Q2

REPORT INFORMATION
  Report Type: Spontaneous
  Country: US (occurrence: None)
  Receive Date: 20140411
  Receipt Date: 20140514
  Transmission Date: 20141212
  Serious: Yes (Hospitalization, Other)
  Sender: FDA-Public Use
  Company Number: 2014-US-004042

PATIENT
  Age: 25 Year
  Sex: Male
  Weight: 59 kg

DRUGS (4)
  1. XYREM [Suspect]
     Indication: NARCOLEPSY
     Route: 048
     Dates: start: 201401, end: 2014
  2. XYREM [Suspect]
     Indication: CATAPLEXY
     Route: 048
     Dates: start: 201401, end: 2014
  3. PARNATE [Suspect]
     Indication: DEPRESSION
     Route: 048
     Dates: start: 201312, end: 201402
  4. ANTIDEPRESSANTS [Concomitant]

REACTIONS (26)
  - Blood glucose decreased [None]
  - Delirium [None]
  - Mania [None]
  - Hypoglycaemia [None]
  - Hypovolaemia [None]
  - Dehydration [None]
  - Asthenia [None]
  - Fall [None]
  - Weight decreased [None]
  - Cataplexy [None]
  - Hypokalaemia [None]
  - Oropharyngeal pain [None]
  - Oropharyngeal pain [None]
  - Dysphagia [None]
  - Drug withdrawal syndrome [None]
  - Disturbance in attention [None]
  - Groin pain [None]
  - Nausea [None]
  - Tremor [None]
  - Agitation [None]
  - Anxiety [None]
  - Hypoaesthesia [None]
  - Confusional state [None]
  - Depressed mood [None]
  - Hyperhidrosis [None]
  - Incorrect dose administered [None]
